FAERS Safety Report 10738779 (Version 1)
Quarter: 2015Q1

REPORT INFORMATION
  Report Type: Spontaneous
  Country: DE (occurrence: DE)
  Receive Date: 20150126
  Receipt Date: 20150126
  Transmission Date: 20150721
  Serious: Yes (Other)
  Sender: FDA-Public Use
  Company Number: DE-009507513-1501DEU004879

PATIENT
  Age: 62 Year
  Sex: Female
  Weight: 78 kg

DRUGS (2)
  1. PEGINTRON [Suspect]
     Active Substance: PEGINTERFERON ALFA-2B
     Indication: LYMPHOCYTIC LYMPHOMA
     Dosage: UNK, QW
     Route: 058
     Dates: start: 201010
  2. TOCTINO [Concomitant]
     Active Substance: ALITRETINOIN
     Indication: SKIN CANCER
     Dosage: UNK, QD
     Dates: start: 201106

REACTIONS (4)
  - Underdose [Recovering/Resolving]
  - Product quality issue [Unknown]
  - Skin disorder [Recovering/Resolving]
  - Underdose [Recovering/Resolving]

NARRATIVE: CASE EVENT DATE: 201501
